FAERS Safety Report 19194526 (Version 1)
Quarter: 2021Q2

REPORT INFORMATION
  Report Type: Spontaneous
  Country: US (occurrence: US)
  Receive Date: 20210429
  Receipt Date: 20210429
  Transmission Date: 20210717
  Serious: Yes (Other)
  Sender: FDA-Public Use
  Company Number: US-MYLANLABS-2021M1024858

PATIENT
  Age: 74 Year
  Sex: Female
  Weight: 50 kg

DRUGS (4)
  1. TROSPIUM [Concomitant]
     Active Substance: TROSPIUM
     Dosage: UNK
  2. ESTRADIOL VAGINAL CREAM USP [Suspect]
     Active Substance: ESTRADIOL
     Indication: CYSTITIS
     Dosage: UNK
     Route: 067
     Dates: start: 20210414
  3. CEFPODOXIME [Concomitant]
     Active Substance: CEFPODOXIME
     Dosage: UNK
  4. LOSARTAN. [Concomitant]
     Active Substance: LOSARTAN
     Dosage: UNK

REACTIONS (2)
  - Kidney infection [Not Recovered/Not Resolved]
  - Product quality issue [Not Recovered/Not Resolved]

NARRATIVE: CASE EVENT DATE: 20210414
